FAERS Safety Report 5153174-1 (Version None)
Quarter: 2006Q4

REPORT INFORMATION
  Report Type: 
  Country: None (occurrence: None)
  Receive Date: 20061117
  Receipt Date: 20060406
  Transmission Date: 20070319
  Serious: Yes (Other)
  Sender: FDA-Public Use
  Company Number: US-NOVOPROD-252298

PATIENT
  Sex: Female
  Weight: 70.295 kg

DRUGS (9)
  1. ACTIVELLA [Suspect]
     Indication: HORMONE REPLACEMENT THERAPY
     Dosage: 1/.5 MG
     Dates: start: 20020101, end: 20040101
  2. PROVERA [Suspect]
     Indication: HORMONE REPLACEMENT THERAPY
     Dosage: 2.5 MG, UNK
     Dates: start: 20000101, end: 20000101
  3. PREMARIN [Suspect]
     Indication: HORMONE REPLACEMENT THERAPY
     Dosage: .625 MG, UNK
     Dates: start: 19800101, end: 20020101
  4. PREMPRO [Suspect]
     Indication: HORMONE REPLACEMENT THERAPY
  5. MEDROXYPROGESTERONE ACETATE [Suspect]
     Indication: HORMONE REPLACEMENT THERAPY
     Dosage: 2.5 MG, UNK
     Dates: start: 19800101, end: 20020101
  6. LIPITOR [Concomitant]
     Indication: BLOOD CHOLESTEROL INCREASED
     Dates: start: 19980101, end: 20050101
  7. FOSAMAX [Concomitant]
     Indication: OSTEOPOROSIS
     Dates: start: 20030101
  8. ZETIA [Concomitant]
     Dates: start: 20050101
  9. MOBIC [Concomitant]
     Dates: start: 20050101

REACTIONS (2)
  - BREAST CANCER [None]
  - BREAST CANCER FEMALE [None]
